FAERS Safety Report 20866323 (Version 5)
Quarter: 2022Q4

REPORT INFORMATION
  Report Type: Report from Study
  Country: US (occurrence: US)
  Receive Date: 20220524
  Receipt Date: 20221216
  Transmission Date: 20230113
  Serious: Yes (Hospitalization)
  Sender: FDA-Public Use
  Company Number: US-INSMED, INC.-2021-09297-US

PATIENT
  Sex: Female
  Weight: 52.608 kg

DRUGS (4)
  1. ARIKAYCE [Suspect]
     Active Substance: AMIKACIN
     Indication: Mycobacterium avium complex infection
     Dosage: 590 MILLIGRAM, TIW
     Route: 055
     Dates: start: 20210823, end: 2021
  2. ARIKAYCE [Suspect]
     Active Substance: AMIKACIN
     Dosage: 590 MILLIGRAM, QD
     Route: 055
     Dates: start: 2021
  3. ARIKAYCE [Suspect]
     Active Substance: AMIKACIN
     Dosage: 590 MILLIGRAM, TIW
     Route: 055
     Dates: start: 2021, end: 20220409
  4. ARIKAYCE [Suspect]
     Active Substance: AMIKACIN
     Dosage: UNK UNK, QOD
     Route: 055
     Dates: start: 202212

REACTIONS (10)
  - Hospitalisation [Unknown]
  - Pulmonary resection [Recovered/Resolved]
  - Nasopharyngitis [Not Recovered/Not Resolved]
  - Abdominal discomfort [Not Recovered/Not Resolved]
  - Sputum discoloured [Not Recovered/Not Resolved]
  - Productive cough [Not Recovered/Not Resolved]
  - Nausea [Not Recovered/Not Resolved]
  - Cough [Not Recovered/Not Resolved]
  - Off label use [Unknown]
  - Therapy interrupted [Unknown]

NARRATIVE: CASE EVENT DATE: 20210101
